FAERS Safety Report 9217909 (Version 2)
Quarter: 2013Q2

REPORT INFORMATION
  Report Type: Spontaneous
  Country: NL (occurrence: NL)
  Receive Date: 20130408
  Receipt Date: 20130411
  Transmission Date: 20140414
  Serious: Yes (Hospitalization, Other)
  Sender: FDA-Public Use
  Company Number: NL-PFIZER INC-2013106397

PATIENT
  Sex: Female

DRUGS (3)
  1. SERTRALINE HCL [Suspect]
     Indication: DEPRESSION
     Dosage: 250 MG, 1X/DAY
     Dates: start: 20030424, end: 200603
  2. XANAX RETARD [Concomitant]
     Dosage: 2 MG, 1X/DAY
  3. XANAX RETARD [Concomitant]
     Dosage: 1 MG, 1X/DAY

REACTIONS (10)
  - Premature delivery [Unknown]
  - Postpartum depression [Unknown]
  - Nausea [Recovered/Resolved with Sequelae]
  - Headache [Recovered/Resolved with Sequelae]
  - Anxiety [Recovered/Resolved with Sequelae]
  - Dehydration [Recovered/Resolved with Sequelae]
  - Restlessness [Recovered/Resolved with Sequelae]
  - Paranoia [Recovered/Resolved with Sequelae]
  - Suspiciousness [Recovered/Resolved with Sequelae]
  - Off label use [Unknown]
